FAERS Safety Report 22243971 (Version 1)
Quarter: 2023Q2

REPORT INFORMATION
  Report Type: Report from Study
  Country: US (occurrence: US)
  Receive Date: 20230424
  Receipt Date: 20230424
  Transmission Date: 20230721
  Serious: Yes (Hospitalization)
  Sender: FDA-Public Use
  Company Number: US-ESPERIONTHERAPEUTICS-2023USA00403

PATIENT
  Age: 46 Year
  Sex: Male

DRUGS (1)
  1. BEMPEDOIC ACID\EZETIMIBE [Suspect]
     Active Substance: BEMPEDOIC ACID\EZETIMIBE
     Indication: Blood cholesterol
     Dosage: 180 MG/10 MG, QD
     Route: 048
     Dates: start: 20230410, end: 20230417

REACTIONS (3)
  - Peripheral vascular disorder [Recovered/Resolved]
  - Erythema [Unknown]
  - Hypersensitivity [Unknown]

NARRATIVE: CASE EVENT DATE: 20230401
